FAERS Safety Report 12984677 (Version 4)
Quarter: 2017Q4

REPORT INFORMATION
  Report Type: Report from Study
  Country: ES (occurrence: ES)
  Receive Date: 20161129
  Receipt Date: 20171120
  Transmission Date: 20180320
  Serious: Yes (Hospitalization, Other)
  Sender: FDA-Public Use
  Company Number: ES-CELGENEUS-ESP-2015124829

PATIENT
  Age: 70 Year
  Sex: Male

DRUGS (16)
  1. ABRAXANE [Suspect]
     Active Substance: PACLITAXEL
     Indication: NON-SMALL CELL LUNG CANCER
     Dosage: 100MG/SQM
     Route: 041
     Dates: start: 20151202, end: 20151209
  2. INDAPAMIDE. [Concomitant]
     Active Substance: INDAPAMIDE
     Indication: HYPERTENSION
     Dosage: 5MG
     Route: 065
     Dates: start: 20090717, end: 20160107
  3. IRBESARTAN. [Concomitant]
     Active Substance: IRBESARTAN
     Indication: HYPERTENSION
     Dosage: 150MG
     Route: 065
     Dates: start: 20111118, end: 20160107
  4. OMEPRAZOLE. [Concomitant]
     Active Substance: OMEPRAZOLE
     Indication: GASTRITIS PROPHYLAXIS
     Dosage: UNKNOWN
     Route: 065
     Dates: start: 20090629
  5. GRANISETRON [Concomitant]
     Active Substance: GRANISETRON
     Indication: PROPHYLACTIC CHEMOTHERAPY
     Route: 065
     Dates: start: 20151202, end: 20151202
  6. ATEZOLIZUMAB. [Suspect]
     Active Substance: ATEZOLIZUMAB
     Indication: NON-SMALL CELL LUNG CANCER
     Dosage: 1200MG
     Route: 041
     Dates: start: 20151202, end: 20151202
  7. ALLOPURINOL. [Concomitant]
     Active Substance: ALLOPURINOL
     Indication: HYPERURICAEMIA
     Dosage: UNKNOWN
     Route: 065
     Dates: start: 20110429, end: 20160107
  8. GLIMEPIRIDE. [Concomitant]
     Active Substance: GLIMEPIRIDE
     Indication: DIABETES MELLITUS
     Dosage: 4MG
     Route: 065
     Dates: start: 20110530, end: 20160107
  9. CARBOPLATIN. [Suspect]
     Active Substance: CARBOPLATIN
     Indication: NON-SMALL CELL LUNG CANCER
     Dosage: 550MG
     Route: 041
     Dates: start: 20151202, end: 20151209
  10. ATENOLOL. [Concomitant]
     Active Substance: ATENOLOL
     Indication: HYPERTENSION
     Dosage: 100MG
     Route: 065
     Dates: start: 20110509, end: 20160202
  11. DOXAZOSINE [Concomitant]
     Active Substance: DOXAZOSIN MESYLATE
     Indication: HYPERTENSION
     Dosage: 4MG
     Route: 065
     Dates: start: 20110429, end: 20160107
  12. METFORMIN [Concomitant]
     Active Substance: METFORMIN HYDROCHLORIDE
     Indication: DIABETES MELLITUS
     Dosage: 150MG
     Route: 065
     Dates: start: 20121105, end: 20160107
  13. CLOPIDOGREL [Concomitant]
     Active Substance: CLOPIDOGREL BISULFATE
     Indication: ANTICOAGULANT THERAPY
     Dosage: 75MG
     Route: 065
     Dates: start: 20100429, end: 20160110
  14. CARBOPLATIN. [Suspect]
     Active Substance: CARBOPLATIN
     Dosage: UNKNOWN
     Route: 041
     Dates: start: 20151209, end: 20151209
  15. SIMVASTATINE [Concomitant]
     Active Substance: SIMVASTATIN
     Indication: TYPE 2 DIABETES MELLITUS
     Dosage: 20MG
     Route: 065
     Dates: start: 20130201, end: 20160107
  16. BEMIPARIN [Concomitant]
     Indication: ANTICOAGULANT THERAPY
     Dosage: UNKNOWN
     Route: 065
     Dates: start: 20160126

REACTIONS (4)
  - Renal failure [Recovered/Resolved]
  - Neutropenia [Recovered/Resolved]
  - Autoimmune colitis [Recovered/Resolved]
  - Autoimmune colitis [Recovered/Resolved]

NARRATIVE: CASE EVENT DATE: 20151213
